FAERS Safety Report 7043963-0 (Version None)
Quarter: 2010Q4

REPORT INFORMATION
  Report Type: 
  Country: None (occurrence: None)
  Receive Date: 20101008
  Receipt Date: 20101008
  Transmission Date: 20110411
  Serious: Yes (Other)
  Sender: FDA-Public Use
  Company Number: None

PATIENT
  Sex: Female
  Weight: 63.2 kg

DRUGS (1)
  1. ENABLEX [Suspect]
     Indication: URGE INCONTINENCE
     Dosage: 7.5 MG ONCE A DAY ORAL
     Route: 048
     Dates: start: 20100901, end: 20100916

REACTIONS (1)
  - MUSCLE SPASMS [None]
